FAERS Safety Report 21906958 (Version 2)
Quarter: 2023Q1

REPORT INFORMATION
  Report Type: Spontaneous
  Country: US (occurrence: US)
  Receive Date: 20230125
  Receipt Date: 20230331
  Transmission Date: 20230418
  Serious: Yes (Other)
  Sender: FDA-Public Use
  Company Number: US-BAYER-2023A009218

PATIENT
  Age: 28 Year
  Sex: Female
  Weight: 100.68 kg

DRUGS (1)
  1. KYLEENA [Suspect]
     Active Substance: LEVONORGESTREL
     Indication: Contraception
     Dosage: 17.5?G/DAY
     Route: 015
     Dates: start: 20180920

REACTIONS (6)
  - Pregnancy with contraceptive device [Unknown]
  - Drug ineffective [None]
  - Amenorrhoea [None]
  - Pelvic pain [None]
  - Medical device monitoring error [None]
  - Contraindicated device used [None]

NARRATIVE: CASE EVENT DATE: 20221101
